FAERS Safety Report 11405583 (Version 1)
Quarter: 2015Q3

REPORT INFORMATION
  Report Type: Spontaneous
  Country: US (occurrence: US)
  Receive Date: 20150821
  Receipt Date: 20150821
  Transmission Date: 20151125
  Serious: No
  Sender: FDA-Public Use
  Company Number: US-PFIZER INC-2015267579

PATIENT
  Age: 66 Year
  Sex: Male
  Weight: 97.51 kg

DRUGS (5)
  1. NEURONTIN [Suspect]
     Active Substance: GABAPENTIN
     Indication: DIABETIC NEUROPATHY
     Dosage: 2600 MG, DAILY
     Route: 048
     Dates: start: 1995
  2. LISINOPRIL. [Concomitant]
     Active Substance: LISINOPRIL
     Dosage: 5 MG, 1X/DAY
     Route: 048
  3. BABY ASPIRIN [Concomitant]
     Active Substance: ASPIRIN
     Dosage: 81 MG, 1X/DAY
     Route: 048
  4. NEURONTIN [Suspect]
     Active Substance: GABAPENTIN
     Dosage: UNK, 2X/DAY
     Route: 048
     Dates: end: 2015
  5. INSULIN [Concomitant]
     Active Substance: INSULIN NOS
     Dosage: (35 UNITS IN MORNING AND 40 UNITS AT BED TIME), 2X/DAY
     Route: 058

REACTIONS (1)
  - Drug ineffective for unapproved indication [Unknown]
